FAERS Safety Report 9464246 (Version 4)
Quarter: 2015Q2

REPORT INFORMATION
  Report Type: Report from Study
  Country: RU (occurrence: RU)
  Receive Date: 20130819
  Receipt Date: 20150518
  Transmission Date: 20150821
  Serious: Yes (Hospitalization)
  Sender: FDA-Public Use
  Company Number: RU-TEVA-426652USA

PATIENT
  Age: 71 Year
  Sex: Female
  Weight: 57.5 kg

DRUGS (21)
  1. BENDAMUSTINE [Suspect]
     Active Substance: BENDAMUSTINE
     Route: 042
  2. RITUXIMAB [Suspect]
     Active Substance: RITUXIMAB
     Indication: LYMPHOCYTIC LYMPHOMA
     Route: 042
  3. PLACEBO [Suspect]
     Active Substance: UNSPECIFIED INGREDIENT
     Indication: CHRONIC LYMPHOCYTIC LEUKAEMIA
     Dosage: 420 MILLIGRAM DAILY; UID/QD
     Route: 048
     Dates: start: 20130122, end: 20130718
  4. RITUXIMAB [Suspect]
     Active Substance: RITUXIMAB
     Route: 042
  5. RITUXIMAB [Suspect]
     Active Substance: RITUXIMAB
     Route: 042
  6. MOTILIUM [Concomitant]
     Active Substance: DOMPERIDONE
     Indication: DIARRHOEA
     Route: 048
     Dates: start: 20130715
  7. PANANGIN [Concomitant]
     Active Substance: MAGNESIUM ASPARTATE\POTASSIUM ASPARTATE
     Indication: HYPOKALAEMIA
     Route: 048
     Dates: start: 20130111
  8. PLACEBO [Suspect]
     Active Substance: UNSPECIFIED INGREDIENT
     Indication: LYMPHOCYTIC LYMPHOMA
  9. LINEX [Concomitant]
     Indication: DYSBACTERIOSIS
     Route: 048
     Dates: start: 20130402, end: 20130514
  10. BENDAMUSTINE [Suspect]
     Active Substance: BENDAMUSTINE
     Route: 042
  11. BIFIDOBACTERIUM BIFIDUM [Concomitant]
     Indication: PROPHYLAXIS
  12. BENDAMUSTINE [Suspect]
     Active Substance: BENDAMUSTINE
     Indication: CHRONIC LYMPHOCYTIC LEUKAEMIA
     Route: 042
     Dates: start: 20130122
  13. RITUXIMAB [Suspect]
     Active Substance: RITUXIMAB
     Indication: CHRONIC LYMPHOCYTIC LEUKAEMIA
     Route: 042
     Dates: start: 20130121
  14. RITUXIMAB [Suspect]
     Active Substance: RITUXIMAB
     Route: 042
  15. RITUXIMAB [Suspect]
     Active Substance: RITUXIMAB
     Route: 042
  16. BENDAMUSTINE [Suspect]
     Active Substance: BENDAMUSTINE
     Indication: LYMPHOCYTIC LYMPHOMA
     Route: 042
  17. BENDAMUSTINE [Suspect]
     Active Substance: BENDAMUSTINE
     Route: 042
  18. BENDAMUSTINE [Suspect]
     Active Substance: BENDAMUSTINE
     Route: 042
  19. KREON [Concomitant]
     Active Substance: PANCRELIPASE
     Indication: DIARRHOEA
     Route: 048
     Dates: start: 20130715, end: 20130903
  20. BERUSANOL [Concomitant]
     Indication: PROPHYLAXIS
     Route: 048
     Dates: start: 20130514
  21. BIFIDOBACTERIUM BIFIDUM [Concomitant]
     Indication: COLITIS EROSIVE
     Route: 048
     Dates: start: 20130416, end: 20130514

REACTIONS (1)
  - Colitis [Recovered/Resolved with Sequelae]

NARRATIVE: CASE EVENT DATE: 20130722
